FAERS Safety Report 7954842-6 (Version None)
Quarter: 2011Q4

REPORT INFORMATION
  Report Type: 
  Country: None (occurrence: None)
  Receive Date: 20111202
  Receipt Date: 20111123
  Transmission Date: 20120403
  Serious: Yes (Hospitalization)
  Sender: FDA-Public Use
  Company Number: US-ACTELION-A-NJ2011-56490

PATIENT

DRUGS (2)
  1. EPOPROSTENOL SODIUM [Suspect]
     Indication: PULMONARY ARTERIAL HYPERTENSION
     Dosage: 79 NG/KG, PER MIN
     Route: 041
     Dates: start: 20100823
  2. COUMADIN [Concomitant]

REACTIONS (5)
  - FLUSHING [None]
  - PLEURISY [None]
  - CHEST PAIN [None]
  - PAIN IN JAW [None]
  - DIARRHOEA [None]
